FAERS Safety Report 8380922-X (Version None)
Quarter: 2012Q2

REPORT INFORMATION
  Report Type: 
  Country: None (occurrence: None)
  Receive Date: 20120523
  Receipt Date: 20120518
  Transmission Date: 20120825
  Serious: Yes (Other)
  Sender: FDA-Public Use
  Company Number: CA-PFIZER INC-2012071094

PATIENT
  Age: 52 Year
  Sex: Female
  Weight: 68.934 kg

DRUGS (9)
  1. ESTRACE [Concomitant]
     Indication: MENOPAUSE
     Dosage: 1 MG, 1X/DAY
     Dates: start: 20100101
  2. CLONAZEPAM [Concomitant]
     Indication: STRESS
  3. PANTOPRAZOLE [Concomitant]
     Indication: ABDOMINAL DISCOMFORT
     Dosage: 40 MG, 1X/DAY
     Dates: start: 20000101
  4. VARENICLINE TARTRATE [Suspect]
     Dosage: 1 MG, 2X/DAY
     Dates: start: 20120201, end: 20120301
  5. VARENICLINE TARTRATE [Suspect]
     Indication: SMOKING CESSATION THERAPY
     Dosage: STARTER PACK
     Dates: start: 20120130, end: 20120201
  6. SCOPOLAMINE [Concomitant]
     Indication: ABDOMINAL PAIN
     Dosage: 10 MG, 3X/DAY
     Dates: start: 20120201
  7. CLONAZEPAM [Concomitant]
     Indication: ANXIETY
     Dosage: 0.5 MG, 2X/DAY
     Dates: start: 20120201
  8. CITALOPRAM [Concomitant]
     Indication: ANXIETY
     Dosage: 20 MG, 1X/DAY
     Dates: start: 20000101
  9. ZOPICLONE [Concomitant]
     Indication: INSOMNIA
     Dosage: 15 MG, ONCE A NIGHT
     Dates: start: 20050101

REACTIONS (12)
  - MOOD SWINGS [None]
  - RETCHING [None]
  - DIVERTICULITIS [None]
  - DRUG INEFFECTIVE [None]
  - GASTROOESOPHAGEAL REFLUX DISEASE [None]
  - FEELING ABNORMAL [None]
  - IRRITABILITY [None]
  - NAUSEA [None]
  - CONSTIPATION [None]
  - ABDOMINAL DISCOMFORT [None]
  - DEPRESSED MOOD [None]
  - TOBACCO USER [None]
